FAERS Safety Report 17834534 (Version 2)
Quarter: 2020Q2

REPORT INFORMATION
  Report Type: Spontaneous
  Country: US (occurrence: US)
  Receive Date: 20200528
  Receipt Date: 20200528
  Transmission Date: 20200714
  Serious: No
  Sender: FDA-Public Use
  Company Number: US-PFIZER INC-2019450692

PATIENT
  Age: 62 Year
  Sex: Female

DRUGS (1)
  1. EUCRISA [Suspect]
     Active Substance: CRISABOROLE
     Indication: PSORIASIS
     Dosage: 1 DF (1 APPLICATION), 2X/DAY
     Route: 061

REACTIONS (4)
  - Application site pain [Unknown]
  - Application site erythema [Unknown]
  - Off label use [Unknown]
  - Product use in unapproved indication [Unknown]
